FAERS Safety Report 18046649 (Version 4)
Quarter: 2024Q3

REPORT INFORMATION
  Report Type: Spontaneous
  Country: DE (occurrence: DE)
  Receive Date: 20200720
  Receipt Date: 20240902
  Transmission Date: 20241017
  Serious: Yes (Hospitalization, Other)
  Sender: SANOFI AVENTIS
  Company Number: DE-MLMSERVICE-20200707-2361739-1

PATIENT
  Age: 52 Year
  Sex: Female

DRUGS (3)
  1. DOCETAXEL [Suspect]
     Active Substance: DOCETAXEL\DOCETAXEL ANHYDROUS
     Indication: Invasive ductal breast carcinoma
     Dosage: UNK
  2. DOXORUBICIN [Suspect]
     Active Substance: DOXORUBICIN
     Indication: Invasive ductal breast carcinoma
     Dosage: UNK
     Route: 065
  3. CYCLOPHOSPHAMIDE [Suspect]
     Active Substance: CYCLOPHOSPHAMIDE
     Indication: Invasive ductal breast carcinoma
     Dosage: UNK
     Route: 065

REACTIONS (7)
  - Thrombotic microangiopathy [Recovered/Resolved]
  - Seizure [Recovering/Resolving]
  - Respiratory failure [Unknown]
  - Mental status changes [Recovering/Resolving]
  - Diarrhoea haemorrhagic [Unknown]
  - Renal failure [Recovering/Resolving]
  - Acute kidney injury [Recovering/Resolving]
